FAERS Safety Report 6339881-3 (Version None)
Quarter: 2009Q3

REPORT INFORMATION
  Report Type: 
  Country: None (occurrence: None)
  Receive Date: 20090903
  Receipt Date: 20090826
  Transmission Date: 20100115
  Serious: Yes (Hospitalization)
  Sender: FDA-Public Use
  Company Number: BR-ABBOTT-09P-020-0594032-00

PATIENT
  Sex: Male
  Weight: 83 kg

DRUGS (1)
  1. HUMIRA [Suspect]
     Indication: RHEUMATOID ARTHRITIS
     Route: 058
     Dates: start: 20081101, end: 20090721

REACTIONS (6)
  - JOINT SWELLING [None]
  - PAIN [None]
  - PARAESTHESIA [None]
  - RHEUMATOID ARTHRITIS [None]
  - SCIATICA [None]
  - TENDON RUPTURE [None]
